FAERS Safety Report 14104944 (Version 1)
Quarter: 2017Q4

REPORT INFORMATION
  Report Type: Spontaneous
  Country: US (occurrence: US)
  Receive Date: 20171018
  Receipt Date: 20171018
  Transmission Date: 20180321
  Serious: Yes (Death, Hospitalization, Other)
  Sender: FDA-Public Use
  Company Number: US-SA-2017SA201440

PATIENT
  Sex: Male

DRUGS (3)
  1. ADVIL [Suspect]
     Active Substance: IBUPROFEN
     Indication: BACK PAIN
     Dosage: 5-10 ADVILS
     Route: 065
  2. ADVIL [Suspect]
     Active Substance: IBUPROFEN
     Indication: PAIN IN EXTREMITY
     Dosage: 5-10 ADVILS
     Route: 065
  3. LEMTRADA [Suspect]
     Active Substance: ALEMTUZUMAB
     Route: 041
     Dates: start: 20160727, end: 20160729

REACTIONS (10)
  - Disseminated intravascular coagulation [Unknown]
  - Epstein-Barr virus infection [Unknown]
  - Flank pain [Unknown]
  - Seizure [Unknown]
  - Acute kidney injury [Unknown]
  - Back pain [Unknown]
  - Hepatic failure [Unknown]
  - Cardiac arrest [Fatal]
  - Respiratory distress [Unknown]
  - Multiple organ dysfunction syndrome [Unknown]

NARRATIVE: CASE EVENT DATE: 2017
